FAERS Safety Report 19751286 (Version 1)
Quarter: 2021Q3

REPORT INFORMATION
  Report Type: Spontaneous
  Country: US (occurrence: US)
  Receive Date: 20210826
  Receipt Date: 20210826
  Transmission Date: 20211014
  Serious: No
  Sender: FDA-Public Use
  Company Number: US-TAKEDA-2021TUS052187

PATIENT

DRUGS (1)
  1. MOTEGRITY [Suspect]
     Active Substance: PRUCALOPRIDE SUCCINATE
     Indication: IMPAIRED GASTRIC EMPTYING
     Dosage: 1 MILLIGRAM, QD
     Route: 065

REACTIONS (3)
  - Product availability issue [Unknown]
  - No adverse event [Unknown]
  - Product use in unapproved indication [Unknown]
